FAERS Safety Report 6524401-0 (Version None)
Quarter: 2010Q1

REPORT INFORMATION
  Report Type: 
  Country: None (occurrence: None)
  Receive Date: 20100101
  Receipt Date: 20091222
  Transmission Date: 20100710
  Serious: Yes (Other)
  Sender: FDA-Public Use
  Company Number: US-RB-024814-09

PATIENT
  Sex: Female

DRUGS (3)
  1. SUBUTEX [Suspect]
     Dosage: LESS THAN 1 MG DAILY
     Route: 060
     Dates: start: 20090801
  2. SUBOXONE [Suspect]
     Indication: DRUG USE FOR UNKNOWN INDICATION
     Dosage: DOSING INFORMATION UNKNOWN
     Route: 065
  3. ATENOLOL [Concomitant]
     Indication: BLOOD PRESSURE
     Dosage: DOSING INFORMATION UNKNOWN
     Route: 065

REACTIONS (12)
  - ABORTION SPONTANEOUS [None]
  - AMENORRHOEA [None]
  - BLOOD PRESSURE INCREASED [None]
  - CHEST PAIN [None]
  - DRUG EXPOSURE DURING PREGNANCY [None]
  - DRUG WITHDRAWAL SYNDROME [None]
  - HEART RATE INCREASED [None]
  - HYPERTHYROIDISM [None]
  - MUSCLE TWITCHING [None]
  - PROGESTERONE DECREASED [None]
  - READING DISORDER [None]
  - TREMOR [None]
